FAERS Safety Report 21009353 (Version 1)
Quarter: 2022Q2

REPORT INFORMATION
  Report Type: Spontaneous
  Country: DK (occurrence: DK)
  Receive Date: 20220627
  Receipt Date: 20220627
  Transmission Date: 20220721
  Serious: Yes (Congenital Anomaly)
  Sender: FDA-Public Use
  Company Number: None

PATIENT

DRUGS (1)
  1. XOLAIR [Suspect]
     Active Substance: OMALIZUMAB
     Indication: Product used for unknown indication
     Dosage: UNK (MATERNAL DOSE: 300 MG, APPROXIMATELY 02JAN2022. EXPOSED THE ENTIRE PREGNANCY)
     Route: 064

REACTIONS (2)
  - Osteochondrodysplasia [Not Recovered/Not Resolved]
  - Foetal exposure during pregnancy [Unknown]
